FAERS Safety Report 21207446 (Version 1)
Quarter: 2022Q3

REPORT INFORMATION
  Report Type: Report from Study
  Country: DE (occurrence: DE)
  Receive Date: 20220812
  Receipt Date: 20220812
  Transmission Date: 20221026
  Serious: Yes (Life-Threatening, Hospitalization)
  Sender: FDA-Public Use
  Company Number: DE-ROCHE-3152304

PATIENT
  Age: 82 Year
  Sex: Male
  Weight: 103 kg

DRUGS (9)
  1. BEVACIZUMAB [Suspect]
     Active Substance: BEVACIZUMAB
     Indication: Hepatic cancer
     Dosage: ON 04/MAY/2022 HE RECEIVED LAST DOSE OF 1269 MG OF BEVACIZUMAB PRIOR TO ADVERSE EVENT.
     Route: 065
     Dates: start: 20211222
  2. ATEZOLIZUMAB [Suspect]
     Active Substance: ATEZOLIZUMAB
     Indication: Hepatic cancer
     Dosage: ON 04/MAY/2022 HE RECEIVED LAST DOSE OF 1200 MG OF ATEZOLIZUMAB PRIOR TO ADVERSE EVENT.
     Route: 065
     Dates: start: 20211222
  3. PANTOPRAZOLE [Concomitant]
     Active Substance: PANTOPRAZOLE
  4. METAMIZOLE [Concomitant]
     Active Substance: METAMIZOLE
     Dosage: FREQ:.5 D;
  5. ASPIRIN [Concomitant]
     Active Substance: ASPIRIN
  6. EZETIMIBE\SIMVASTATIN [Concomitant]
     Active Substance: EZETIMIBE\SIMVASTATIN
  7. ENALAPRIL [Concomitant]
     Active Substance: ENALAPRIL
     Dosage: 20 MG, 1X/DAY
  8. ALLOPURINOL [Concomitant]
     Active Substance: ALLOPURINOL
     Dosage: 300 MG, 1X/DAY
  9. CARVEDILOL [Concomitant]
     Active Substance: CARVEDILOL
     Dosage: FREQ:.5 D;

REACTIONS (1)
  - Upper gastrointestinal haemorrhage [Recovered/Resolved]

NARRATIVE: CASE EVENT DATE: 20220523
